FAERS Safety Report 19426725 (Version 4)
Quarter: 2022Q3

REPORT INFORMATION
  Report Type: Report from Study
  Country: CA (occurrence: CA)
  Receive Date: 20210617
  Receipt Date: 20220927
  Transmission Date: 20221026
  Serious: Yes (Other)
  Sender: FDA-Public Use
  Company Number: NVSC2021CA129619

PATIENT
  Age: 49 Year
  Sex: Male

DRUGS (3)
  1. MAYZENT [Suspect]
     Active Substance: SIPONIMOD
     Indication: Secondary progressive multiple sclerosis
     Dosage: UNK
     Route: 048
     Dates: start: 20210303
  2. MAYZENT [Suspect]
     Active Substance: SIPONIMOD
     Dosage: UNK, QD
     Route: 048
  3. MAYZENT [Suspect]
     Active Substance: SIPONIMOD
     Dosage: UNK
     Route: 065
     Dates: end: 20220829

REACTIONS (6)
  - White blood cell count decreased [Unknown]
  - Lymphocyte count decreased [Unknown]
  - Neutrophil count decreased [Unknown]
  - Infection [Unknown]
  - Product dose omission issue [Unknown]
  - Off label use [Unknown]

NARRATIVE: CASE EVENT DATE: 20210601
